FAERS Safety Report 8376414-4 (Version None)
Quarter: 2012Q2

REPORT INFORMATION
  Report Type: 
  Country: None (occurrence: None)
  Receive Date: 20120522
  Receipt Date: 20120521
  Transmission Date: 20120825
  Serious: Yes (Other)
  Sender: FDA-Public Use
  Company Number: PHHO2011US17016

PATIENT
  Sex: Female
  Weight: 65 kg

DRUGS (6)
  1. CYMBALTA [Concomitant]
     Indication: DEPRESSION
     Dosage: 120 MG, QD
     Route: 048
     Dates: start: 20090101
  2. DEXEDRINE [Concomitant]
     Indication: BACK PAIN
     Dosage: 2 DF, PRN
     Route: 048
     Dates: start: 20110701
  3. CHLORZOXAZONE [Concomitant]
     Indication: BACK PAIN
     Dosage: 500 MG, PRN
     Route: 048
     Dates: start: 20110421
  4. ADDERALL 5 [Concomitant]
     Indication: FATIGUE
     Dosage: 10 MG, QD
     Route: 048
     Dates: start: 20091201
  5. GILENYA [Suspect]
     Indication: MULTIPLE SCLEROSIS
     Dosage: 0.5 MG, QD
     Route: 048
     Dates: start: 20110613, end: 20110928
  6. MELOXICAM [Concomitant]
     Indication: BACK PAIN
     Dosage: 15 MG, PRN
     Route: 048
     Dates: start: 20110421

REACTIONS (1)
  - SUNBURN [None]
